FAERS Safety Report 9787704 (Version 1)
Quarter: 2013Q4

REPORT INFORMATION
  Report Type: Spontaneous
  Country: FR (occurrence: FR)
  Receive Date: 20131230
  Receipt Date: 20131230
  Transmission Date: 20140711
  Serious: Yes (Life-Threatening)
  Sender: FDA-Public Use
  Company Number: FR-JNJFOC-20131214534

PATIENT
  Sex: Female

DRUGS (4)
  1. XARELTO [Suspect]
     Indication: EMBOLISM VENOUS
     Route: 048
  2. XARELTO [Suspect]
     Indication: EMBOLISM VENOUS
     Route: 048
  3. XARELTO [Suspect]
     Indication: VENOUS THROMBOSIS
     Route: 048
  4. XARELTO [Suspect]
     Indication: VENOUS THROMBOSIS
     Route: 048

REACTIONS (4)
  - Pulmonary embolism [Unknown]
  - Pulmonary hypertension [Unknown]
  - Cardiac arrest [Unknown]
  - Drug ineffective [Unknown]
